FAERS Safety Report 8307679-2 (Version None)
Quarter: 2012Q2

REPORT INFORMATION
  Report Type: 
  Country: None (occurrence: None)
  Receive Date: 20120424
  Receipt Date: 20120424
  Transmission Date: 20120825
  Serious: Yes (Other)
  Sender: FDA-Public Use
  Company Number: None

PATIENT
  Sex: Female
  Weight: 86.182 kg

DRUGS (1)
  1. XARELTO [Suspect]
     Indication: POSTOPERATIVE CARE
     Dates: start: 20120208, end: 20120215

REACTIONS (4)
  - CHEST PAIN [None]
  - HYPERHIDROSIS [None]
  - PAIN IN EXTREMITY [None]
  - DYSPNOEA [None]
